FAERS Safety Report 7931476-0 (Version None)
Quarter: 2011Q4

REPORT INFORMATION
  Report Type: 
  Country: None (occurrence: None)
  Receive Date: 20111121
  Receipt Date: 20111114
  Transmission Date: 20120403
  Serious: Yes (Hospitalization)
  Sender: FDA-Public Use
  Company Number: US-UCBSA-044462

PATIENT
  Age: 43 Year
  Sex: Female
  Weight: 90.9 kg

DRUGS (4)
  1. PROBIOTICS [Concomitant]
     Indication: SUPPLEMENTATION THERAPY
     Dosage: 1 TABLET, ONCE DAILY
     Route: 048
     Dates: start: 20101101
  2. ACETAMINOPHEN [Concomitant]
     Indication: PAIN
     Dosage: 1 TABLET
     Route: 048
     Dates: start: 20110329
  3. CERTOLIZUMAB PEGOL [Suspect]
     Indication: RHEUMATOID ARTHRITIS
     Dosage: NO. OF DOSES RECEIVED: 13
     Route: 058
     Dates: start: 20110524, end: 20111010
  4. IBUPROFEN [Concomitant]
     Indication: PAIN
     Route: 048
     Dates: start: 19980801

REACTIONS (2)
  - BLADDER PERFORATION [None]
  - CERVICAL DYSPLASIA [None]
